FAERS Safety Report 25944256 (Version 6)
Quarter: 2025Q4

REPORT INFORMATION
  Report Type: Spontaneous
  Country: US (occurrence: US)
  Receive Date: 20251021
  Receipt Date: 20251231
  Transmission Date: 20260117
  Serious: No
  Sender: SANOFI AVENTIS
  Company Number: US-SA-2025SA310518

PATIENT
  Age: 20 Year
  Sex: Female

DRUGS (5)
  1. DUPIXENT [Suspect]
     Active Substance: DUPILUMAB
     Indication: Dermatitis atopic
     Dosage: 600 MG, 1X
     Route: 058
     Dates: start: 20250904, end: 20250904
  2. DUPIXENT [Suspect]
     Active Substance: DUPILUMAB
     Indication: Urticaria
     Dosage: 300 MG, QOW
     Route: 058
     Dates: start: 202509
  3. GATTEX [Concomitant]
     Active Substance: TEDUGLUTIDE\WATER
     Indication: Malabsorption
     Dosage: UNK
  4. HEPARIN [Concomitant]
     Active Substance: HEPARIN SODIUM
  5. EPINEPHRINE [Concomitant]
     Active Substance: EPINEPHRINE

REACTIONS (14)
  - Implant site infection [Unknown]
  - Infection [Unknown]
  - Stress [Unknown]
  - Pain [Unknown]
  - Swelling [Unknown]
  - Gastrointestinal disorder [Unknown]
  - Facial discomfort [Unknown]
  - Limb discomfort [Unknown]
  - Hereditary angioedema [Unknown]
  - Throat tightness [Unknown]
  - Laryngeal disorder [Unknown]
  - Weight increased [Unknown]
  - Dermatitis atopic [Unknown]
  - Product use in unapproved indication [Unknown]

NARRATIVE: CASE EVENT DATE: 20250101
